FAERS Safety Report 24367698 (Version 3)
Quarter: 2024Q4

REPORT INFORMATION
  Report Type: Spontaneous
  Country: US (occurrence: US)
  Receive Date: 20240926
  Receipt Date: 20241101
  Transmission Date: 20250114
  Serious: No
  Sender: PFIZER
  Company Number: US-SEATTLE GENETICS-2021SGN01002

PATIENT

DRUGS (4)
  1. ADCETRIS [Suspect]
     Active Substance: BRENTUXIMAB VEDOTIN
     Dosage: UNK, CYCLIC
     Route: 065
  2. DOXORUBICIN HYDROCHLORIDE [Suspect]
     Active Substance: DOXORUBICIN HYDROCHLORIDE
     Dosage: UNK UNK, CYCLIC
     Route: 065
  3. DACARBAZINE [Suspect]
     Active Substance: DACARBAZINE
     Dosage: UNK UNK, CYCLIC
     Route: 065
  4. VINBLASTINE [Suspect]
     Active Substance: VINBLASTINE
     Dosage: UNK UNK, CYCLIC
     Route: 065

REACTIONS (2)
  - Muscle spasms [Recovered/Resolved]
  - Condition aggravated [Recovered/Resolved]
